FAERS Safety Report 21457625 (Version 1)
Quarter: 2022Q4

REPORT INFORMATION
  Report Type: Spontaneous
  Country: US (occurrence: US)
  Receive Date: 20221014
  Receipt Date: 20221014
  Transmission Date: 20230113
  Serious: No
  Sender: FDA-Public Use
  Company Number: US-009507513-2210USA000897

PATIENT
  Sex: Male

DRUGS (3)
  1. PIFELTRO [Suspect]
     Active Substance: DORAVIRINE
     Indication: Antiviral treatment
     Dosage: 100 MILLIGRAM, QD
     Route: 048
  2. PIFELTRO [Suspect]
     Active Substance: DORAVIRINE
     Indication: CD4 lymphocytes abnormal
  3. TRIUMEQ [Concomitant]
     Active Substance: ABACAVIR SULFATE\DOLUTEGRAVIR SODIUM\LAMIVUDINE
     Dosage: UNK

REACTIONS (3)
  - Drug ineffective [Unknown]
  - Nausea [Unknown]
  - Nightmare [Unknown]
